FAERS Safety Report 10206550 (Version 1)
Quarter: 2014Q2

REPORT INFORMATION
  Report Type: Spontaneous
  Country: US (occurrence: US)
  Receive Date: 20140530
  Receipt Date: 20140530
  Transmission Date: 20141212
  Serious: No
  Sender: FDA-Public Use
  Company Number: US-GLAXOSMITHKLINE-A1032831A

PATIENT
  Sex: Male

DRUGS (2)
  1. FLOLAN [Suspect]
     Indication: COR PULMONALE CHRONIC
     Dosage: 17NGKM CONTINUOUS
     Route: 042
     Dates: start: 20100604, end: 201305
  2. VELETRI [Suspect]
     Dates: start: 201305

REACTIONS (2)
  - Dyspnoea [Unknown]
  - Abdominal distension [Unknown]
